FAERS Safety Report 8512015-2 (Version None)
Quarter: 2012Q2

REPORT INFORMATION
  Report Type: 
  Country: None (occurrence: None)
  Receive Date: 20120405
  Receipt Date: 20081020
  Transmission Date: 20120825
  Serious: Yes (Other)
  Sender: FDA-Public Use
  Company Number: PHEH2008US06903

PATIENT
  Sex: Female

DRUGS (3)
  1. LYRICA [Concomitant]
  2. RECLAST [Suspect]
     Dates: start: 20080805
  3. VICODIN ES [Concomitant]

REACTIONS (3)
  - DECREASED APPETITE [None]
  - PYREXIA [None]
  - MALAISE [None]
